FAERS Safety Report 19142325 (Version 1)
Quarter: 2021Q2

REPORT INFORMATION
  Report Type: Spontaneous
  Country: JP (occurrence: JP)
  Receive Date: 20210416
  Receipt Date: 20210416
  Transmission Date: 20210717
  Serious: Yes (Other)
  Sender: FDA-Public Use
  Company Number: JP-ROCHE-2809280

PATIENT
  Age: 80 Year
  Sex: Female

DRUGS (5)
  1. LYRICA [Concomitant]
     Active Substance: PREGABALIN
     Indication: PRODUCT USED FOR UNKNOWN INDICATION
     Dates: start: 20160427
  2. BONVIVA [Suspect]
     Active Substance: IBANDRONATE SODIUM
     Indication: OSTEOPOROSIS
     Route: 048
     Dates: start: 20160825, end: 201701
  3. BONVIVA [Suspect]
     Active Substance: IBANDRONATE SODIUM
     Indication: OSTEOPOROSIS
     Route: 042
     Dates: start: 20170208, end: 20201104
  4. TRYPTANOL [Concomitant]
     Active Substance: AMITRIPTYLINE
     Indication: PRODUCT USED FOR UNKNOWN INDICATION
     Dates: start: 20160427
  5. NUTROPIN [Concomitant]
     Active Substance: SOMATROPIN
     Indication: PRODUCT USED FOR UNKNOWN INDICATION
     Dates: end: 20160427

REACTIONS (5)
  - Osteonecrosis of jaw [Not Recovered/Not Resolved]
  - Tooth extraction [Unknown]
  - Treatment noncompliance [Unknown]
  - Osteomyelitis [Not Recovered/Not Resolved]
  - Back pain [Unknown]

NARRATIVE: CASE EVENT DATE: 202006
